FAERS Safety Report 25984084 (Version 1)
Quarter: 2025Q4

REPORT INFORMATION
  Report Type: Spontaneous
  Country: US (occurrence: US)
  Receive Date: 20251031
  Receipt Date: 20251031
  Transmission Date: 20260119
  Serious: Yes (Other)
  Sender: AMGEN
  Company Number: US-AMGEN-USASP2025211033

PATIENT
  Age: 11 Year
  Sex: Female

DRUGS (4)
  1. PREDNISONE [Suspect]
     Active Substance: PREDNISONE
     Indication: Acute graft versus host disease in skin
     Dosage: UNK (SHORT COURSE)
     Route: 065
  2. CYCLOSPORINE [Concomitant]
     Active Substance: CYCLOSPORINE
     Indication: Prophylaxis against transplant rejection
  3. TACROLIMUS [Concomitant]
     Active Substance: TACROLIMUS
     Indication: Prophylaxis against transplant rejection
     Dosage: UNK
     Route: 048
  4. MYCOPHENOLATE MOFETIL [Concomitant]
     Active Substance: MYCOPHENOLATE MOFETIL
     Indication: Prophylaxis against transplant rejection

REACTIONS (7)
  - Chronic graft versus host disease in skin [Recovered/Resolved]
  - Clostridium difficile colitis [Unknown]
  - Klebsiella bacteraemia [Unknown]
  - Acinetobacter bacteraemia [Unknown]
  - Bell^s palsy [Recovered/Resolved]
  - Cytomegalovirus infection reactivation [Unknown]
  - Herpes simplex reactivation [Unknown]
